APPROVED DRUG PRODUCT: ETODOLAC
Active Ingredient: ETODOLAC
Strength: 300MG
Dosage Form/Route: CAPSULE;ORAL
Application: A074844 | Product #002
Applicant: ANI PHARMACEUTICALS INC
Approved: Dec 23, 1997 | RLD: No | RS: No | Type: DISCN